FAERS Safety Report 4355247-X (Version None)
Quarter: 2004Q2

REPORT INFORMATION
  Report Type: 
  Country: None (occurrence: None)
  Receive Date: 20040504
  Receipt Date: 20040420
  Transmission Date: 20050107
  Serious: Yes (Hospitalization, Other)
  Sender: FDA-Public Use
  Company Number: 236437

PATIENT
  Age: 58 Year
  Sex: Male

DRUGS (1)
  1. NOVOMIX 30 (INSULIN ASPART) SUSPENSION FOR INJECTION, 100U/ML [Suspect]
     Indication: ILL-DEFINED DISORDER
     Dates: start: 20030701

REACTIONS (2)
  - ESCHERICHIA INFECTION [None]
  - PROSTATIC DISORDER [None]
